FAERS Safety Report 22526827 (Version 1)
Quarter: 2023Q2

REPORT INFORMATION
  Report Type: Spontaneous
  Country: KR (occurrence: KR)
  Receive Date: 20230606
  Receipt Date: 20230606
  Transmission Date: 20230722
  Serious: Yes (Other)
  Sender: FDA-Public Use
  Company Number: KR-ORGANON-O2306KOR000099

PATIENT
  Sex: Female

DRUGS (3)
  1. HYDROCHLOROTHIAZIDE\LOSARTAN POTASSIUM [Suspect]
     Active Substance: HYDROCHLOROTHIAZIDE\LOSARTAN POTASSIUM
     Indication: Essential hypertension
     Dosage: UNK, FORMULATION: FILM COATED TABLETS
     Route: 048
     Dates: start: 20100420
  2. LOSARTAN POTASSIUM [Suspect]
     Active Substance: LOSARTAN POTASSIUM
     Indication: Essential hypertension
     Dosage: UNK
     Route: 048
     Dates: start: 20060706
  3. S-AMLODIPINE BESILATE DIHYDRATE [Concomitant]
     Indication: Essential hypertension
     Dosage: UNK, FORMULATION: UNCOATED TABLET
     Route: 048
     Dates: start: 20100420

REACTIONS (10)
  - Arrhythmia [Unknown]
  - Suicide attempt [Not Recovered/Not Resolved]
  - Tinnitus [Not Recovered/Not Resolved]
  - Insomnia [Not Recovered/Not Resolved]
  - Depression [Not Recovered/Not Resolved]
  - Libido decreased [Not Recovered/Not Resolved]
  - Nightmare [Not Recovered/Not Resolved]
  - Memory impairment [Not Recovered/Not Resolved]
  - Anxiety [Not Recovered/Not Resolved]
  - Headache [Unknown]
